FAERS Safety Report 5384805-9 (Version None)
Quarter: 2007Q3

REPORT INFORMATION
  Report Type: 
  Country: None (occurrence: None)
  Receive Date: 20070711
  Receipt Date: 20070702
  Transmission Date: 20080115
  Serious: Yes (Other)
  Sender: FDA-Public Use
  Company Number: US-PFIZER INC-2007055800

PATIENT
  Sex: Female
  Weight: 90.9 kg

DRUGS (9)
  1. CHANTIX [Suspect]
     Indication: SMOKING CESSATION THERAPY
     Dosage: TEXT:EVERY DAY
  2. LOVASTATIN [Concomitant]
  3. HYDROCHLOROTHIAZIDE [Concomitant]
  4. LEVOTHYROXINE SODIUM [Concomitant]
  5. PAROXETINE [Concomitant]
  6. COZAAR [Concomitant]
  7. NIFEDIPINE [Concomitant]
  8. DEPAKOTE [Concomitant]
  9. MOBIC [Concomitant]

REACTIONS (2)
  - TOOTH EXTRACTION [None]
  - WEIGHT DECREASED [None]
